FAERS Safety Report 7450067-1 (Version None)
Quarter: 2011Q2

REPORT INFORMATION
  Report Type: 
  Country: None (occurrence: None)
  Receive Date: 20110421
  Receipt Date: 20110406
  Transmission Date: 20111010
  Serious: Yes (Death, Hospitalization)
  Sender: FDA-Public Use
  Company Number: AE 2011-125

PATIENT
  Age: 51 Year
  Sex: Male

DRUGS (2)
  1. CLOZAPINE [Suspect]
     Indication: SCHIZOPHRENIA
  2. ESOMEPRAZOLE MAGNESIUM [Concomitant]

REACTIONS (8)
  - OESOPHAGEAL HAEMORRHAGE [None]
  - HEPATIC ENCEPHALOPATHY [None]
  - OESOPHAGEAL CANDIDIASIS [None]
  - HEPATIC NECROSIS [None]
  - ACUTE HEPATIC FAILURE [None]
  - HEPATITIS [None]
  - OESOPHAGITIS ULCERATIVE [None]
  - LIVER INJURY [None]
